FAERS Safety Report 6880942-8 (Version None)
Quarter: 2010Q3

REPORT INFORMATION
  Report Type: 
  Country: None (occurrence: None)
  Receive Date: 20100728
  Receipt Date: 20100722
  Transmission Date: 20110219
  Serious: Yes (Death, Other)
  Sender: FDA-Public Use
  Company Number: GB-ABBOTT-10P-167-0659328-00

PATIENT
  Age: 45 Year
  Sex: Female

DRUGS (5)
  1. VALPROATE SODIUM [Suspect]
     Indication: MOOD ALTERED
     Route: 048
     Dates: end: 20100301
  2. CLOZARIL [Suspect]
     Indication: SCHIZOPHRENIA
     Route: 048
     Dates: start: 19941201, end: 20100301
  3. HYOSCINE HBR HYT [Suspect]
     Indication: SALIVARY HYPERSECRETION
     Dates: end: 20100301
  4. BENZHEXOL [Suspect]
     Indication: EXTRAPYRAMIDAL DISORDER
     Route: 048
     Dates: end: 20100301
  5. LACTULOSE [Concomitant]
     Indication: PRODUCT USED FOR UNKNOWN INDICATION
     Dates: end: 20100301

REACTIONS (14)
  - ABDOMINAL COMPARTMENT SYNDROME [None]
  - ABDOMINAL DISTENSION [None]
  - ABDOMINAL PAIN [None]
  - BOWEL MOVEMENT IRREGULARITY [None]
  - COAGULOPATHY [None]
  - CONSTIPATION [None]
  - DIABETES MELLITUS [None]
  - HAEMODYNAMIC INSTABILITY [None]
  - HYPOTENSION [None]
  - HYPOTHERMIA [None]
  - INTESTINAL OBSTRUCTION [None]
  - METABOLIC ACIDOSIS [None]
  - MULTI-ORGAN FAILURE [None]
  - TACHYCARDIA [None]
